FAERS Safety Report 24088164 (Version 1)
Quarter: 2024Q3

REPORT INFORMATION
  Report Type: Spontaneous
  Country: AU (occurrence: AU)
  Receive Date: 20240715
  Receipt Date: 20240715
  Transmission Date: 20241017
  Serious: Yes (Other)
  Sender: PFIZER
  Company Number: AU-JNJFOC-20240718031

PATIENT
  Sex: Female

DRUGS (1)
  1. FLUCONAZOLE [Suspect]
     Active Substance: FLUCONAZOLE
     Dosage: UNK

REACTIONS (6)
  - Syncope [Recovered/Resolved]
  - Visual impairment [Not Recovered/Not Resolved]
  - Dyspnoea [Unknown]
  - Anxiety [Unknown]
  - Asthenopia [Unknown]
  - Hyperhidrosis [Unknown]
